FAERS Safety Report 9298929 (Version 1)
Quarter: 2013Q2

REPORT INFORMATION
  Report Type: Spontaneous
  Country: US (occurrence: US)
  Receive Date: 20130520
  Receipt Date: 20130520
  Transmission Date: 20140414
  Serious: No
  Sender: FDA-Public Use
  Company Number: US-SANOFI-AVENTIS-2012SA083332

PATIENT
  Age: 62 Year
  Sex: Male

DRUGS (2)
  1. SOLOSTAR [Suspect]
     Dates: start: 201211
  2. APIDRA SOLOSTAR [Suspect]
     Dosage: DOSE:4 UNIT(S)
     Route: 058
     Dates: start: 201211

REACTIONS (2)
  - Malaise [Unknown]
  - Hyperglycaemia [Unknown]
